FAERS Safety Report 11076608 (Version 4)
Quarter: 2015Q2

REPORT INFORMATION
  Report Type: Spontaneous
  Country: JP (occurrence: JP)
  Receive Date: 20150429
  Receipt Date: 20150619
  Transmission Date: 20150821
  Serious: Yes (Hospitalization, Other)
  Sender: FDA-Public Use
  Company Number: JP-TAKEDA-2015TUS005585

PATIENT
  Age: 63 Year
  Sex: Male

DRUGS (2)
  1. FEBURIC [Suspect]
     Active Substance: FEBUXOSTAT
     Indication: HYPERURICAEMIA
     Dosage: 10 MG, QD
     Route: 048
     Dates: start: 20140415, end: 20140612
  2. FEBURIC [Suspect]
     Active Substance: FEBUXOSTAT
     Dosage: 20 MG, QD
     Route: 048
     Dates: start: 20140613, end: 20150414

REACTIONS (3)
  - Rash generalised [Recovering/Resolving]
  - Liver function test abnormal [Recovering/Resolving]
  - Bladder cancer [Unknown]

NARRATIVE: CASE EVENT DATE: 201407
